FAERS Safety Report 10518280 (Version 1)
Quarter: 2014Q4

REPORT INFORMATION
  Report Type: Report from Study
  Country: AU (occurrence: AU)
  Receive Date: 20141015
  Receipt Date: 20141015
  Transmission Date: 20150528
  Serious: Yes (Hospitalization, Other)
  Sender: FDA-Public Use
  Company Number: AU-ROCHE-1475015

PATIENT
  Age: 77 Year
  Sex: Female

DRUGS (1)
  1. ACTEMRA [Suspect]
     Active Substance: TOCILIZUMAB
     Indication: RHEUMATOID ARTHRITIS
     Dosage: ONGOING
     Route: 042
     Dates: start: 20140228

REACTIONS (4)
  - Arthralgia [Unknown]
  - Rash [Unknown]
  - Joint swelling [Unknown]
  - Panniculitis [Unknown]

NARRATIVE: CASE EVENT DATE: 20141007
